FAERS Safety Report 6043419-8 (Version None)
Quarter: 2009Q1

REPORT INFORMATION
  Report Type: 
  Country: None (occurrence: None)
  Receive Date: 20090115
  Receipt Date: 20090115
  Transmission Date: 20090719
  Serious: No
  Sender: FDA-Public Use
  Company Number: None

PATIENT
  Age: 33 Year
  Sex: Female
  Weight: 108 kg

DRUGS (6)
  1. METRONIDAZOLE [Suspect]
     Indication: INJECTION
     Dosage: 500 MG Q8H IV
     Route: 042
     Dates: start: 20080926, end: 20080930
  2. CIPROFLOXACIN [Suspect]
     Indication: INJECTION
     Dosage: 400 MG Q12H IV
     Route: 042
     Dates: start: 20080926, end: 20080930
  3. LITHIUM [Concomitant]
  4. CELEXA [Concomitant]
  5. SEROQUEL [Concomitant]
  6. TRAZODONE HCL [Concomitant]

REACTIONS (1)
  - NEUTROPENIA [None]
